FAERS Safety Report 20541948 (Version 1)
Quarter: 2022Q1

REPORT INFORMATION
  Report Type: Spontaneous
  Country: FR (occurrence: FR)
  Receive Date: 20220302
  Receipt Date: 20220302
  Transmission Date: 20220423
  Serious: Yes (Other)
  Sender: FDA-Public Use
  Company Number: FR-JNJFOC-20211221044

PATIENT
  Age: 28 Year
  Sex: Male

DRUGS (3)
  1. PALIPERIDONE PALMITATE [Suspect]
     Active Substance: PALIPERIDONE PALMITATE
     Indication: Product used for unknown indication
     Route: 030
  2. PALIPERIDONE PALMITATE [Suspect]
     Active Substance: PALIPERIDONE PALMITATE
  3. PALIPERIDONE PALMITATE [Suspect]
     Active Substance: PALIPERIDONE PALMITATE

REACTIONS (8)
  - Suicide attempt [Unknown]
  - Weight increased [Unknown]
  - Insomnia [Unknown]
  - Tremor [Unknown]
  - Musculoskeletal stiffness [Unknown]
  - Sluggishness [Unknown]
  - Abnormal behaviour [Unknown]
  - Memory impairment [Recovered/Resolved]
